FAERS Safety Report 17013110 (Version 1)
Quarter: 2019Q4

REPORT INFORMATION
  Report Type: Spontaneous
  Country: US (occurrence: US)
  Receive Date: 20191001
  Receipt Date: 20191001
  Transmission Date: 20200122
  Serious: No
  Sender: FDA-Public Use
  Company Number: None

PATIENT
  Age: 58 Year
  Sex: Male
  Weight: 93.44 kg

DRUGS (1)
  1. AMLODIPINE/BENAZEPRIL [Suspect]
     Active Substance: AMLODIPINE BESYLATE\BENAZEPRIL HYDROCHLORIDE
     Dosage: ?          OTHER DOSE:5/10 MG;?
     Route: 048
     Dates: start: 20190404, end: 20190820

REACTIONS (3)
  - Angioedema [None]
  - Painful respiration [None]
  - Chest pain [None]

NARRATIVE: CASE EVENT DATE: 20190820
